FAERS Safety Report 18744774 (Version 2)
Quarter: 2021Q2

REPORT INFORMATION
  Report Type: Spontaneous
  Country: US (occurrence: US)
  Receive Date: 20210115
  Receipt Date: 20210617
  Transmission Date: 20210717
  Serious: No
  Sender: FDA-Public Use
  Company Number: US-BEH-2021127186

PATIENT
  Sex: Female

DRUGS (2)
  1. HIZENTRA [Suspect]
     Active Substance: HUMAN IMMUNOGLOBULIN G
     Indication: IMMUNODEFICIENCY COMMON VARIABLE
     Dosage: 24 GRAM, QOW
     Route: 058
     Dates: start: 202012
  2. HIZENTRA [Suspect]
     Active Substance: HUMAN IMMUNOGLOBULIN G
     Dosage: 24 GRAM, QOW
     Route: 058
     Dates: start: 202011

REACTIONS (10)
  - Headache [Unknown]
  - Feeling cold [Unknown]
  - Arthralgia [Unknown]
  - Myalgia [Unknown]
  - Infusion site swelling [Unknown]
  - Pain [Unknown]
  - Bone pain [Unknown]
  - Injection site mass [Unknown]
  - Hot flush [Unknown]
  - Injection site nodule [Unknown]
